FAERS Safety Report 20458223 (Version 1)
Quarter: 2022Q1

REPORT INFORMATION
  Report Type: Spontaneous
  Country: US (occurrence: US)
  Receive Date: 20220211
  Receipt Date: 20220211
  Transmission Date: 20220423
  Serious: Yes (Other)
  Sender: FDA-Public Use
  Company Number: US-HETERO-HET2022US00333

PATIENT

DRUGS (5)
  1. RITONAVIR [Suspect]
     Active Substance: RITONAVIR
     Indication: COVID-19
     Dosage: UNK
     Route: 065
     Dates: start: 20220201
  2. DEXTROMETHORPHAN [Concomitant]
     Active Substance: DEXTROMETHORPHAN
     Indication: Cough
     Dosage: UNK
     Route: 065
  3. TYLENOL                            /00020001/ [Concomitant]
     Indication: Cough
     Dosage: UNK
     Route: 065
  4. AMLODIPINE [Concomitant]
     Active Substance: AMLODIPINE BESYLATE
     Indication: Cough
     Dosage: UNK
     Route: 065
  5. GUAIFENESIN [Concomitant]
     Active Substance: GUAIFENESIN
     Indication: Cough
     Dosage: UNK
     Route: 065

REACTIONS (5)
  - COVID-19 [Unknown]
  - Condition aggravated [Unknown]
  - Cough [Not Recovered/Not Resolved]
  - Drug ineffective [Unknown]
  - Throat tightness [Unknown]
